FAERS Safety Report 4826734-2 (Version None)
Quarter: 2005Q4

REPORT INFORMATION
  Report Type: 
  Country: None (occurrence: None)
  Receive Date: 20051111
  Receipt Date: 20051111
  Transmission Date: 20060501
  Serious: Yes (Other)
  Sender: FDA-Public Use
  Company Number: None

PATIENT
  Sex: Male
  Weight: 99.7913 kg

DRUGS (3)
  1. RYTHMOL SR [Suspect]
     Indication: ATRIAL FIBRILLATION
     Dosage: 1 PILL   TWICE A DAY   PO
     Route: 048
     Dates: start: 20050930, end: 20051030
  2. RYTHMOL SR [Suspect]
     Indication: ATRIAL FLUTTER
     Dosage: 1 PILL   TWICE A DAY   PO
     Route: 048
     Dates: start: 20050930, end: 20051030
  3. RYTHMOL SR [Suspect]
     Dates: start: 20050915, end: 20050929

REACTIONS (3)
  - ATRIAL FIBRILLATION [None]
  - GASTROINTESTINAL DISORDER [None]
  - VISUAL ACUITY REDUCED [None]
